FAERS Safety Report 9538988 (Version 1)
Quarter: 2013Q3

REPORT INFORMATION
  Report Type: Spontaneous
  Country: FR (occurrence: FR)
  Receive Date: 20130920
  Receipt Date: 20130920
  Transmission Date: 20140515
  Serious: Yes (Life-Threatening)
  Sender: FDA-Public Use
  Company Number: FR-009507513-1309FRA005628

PATIENT
  Age: 60 Year
  Sex: Male

DRUGS (2)
  1. ZOLINZA [Suspect]
     Indication: MYCOSIS FUNGOIDES
     Dosage: 4 DF, QD
     Route: 048
     Dates: start: 20121128, end: 20130111
  2. ZOLINZA [Suspect]
     Dosage: UNK
     Route: 048
     Dates: start: 20130127

REACTIONS (1)
  - Febrile neutropenia [Recovered/Resolved with Sequelae]
